FAERS Safety Report 4526063-0 (Version None)
Quarter: 2004Q4

REPORT INFORMATION
  Report Type: 
  Country: None (occurrence: None)
  Receive Date: 20041129
  Receipt Date: 20040728
  Transmission Date: 20050328
  Serious: Yes (Hospitalization)
  Sender: FDA-Public Use
  Company Number: USA040773931

PATIENT
  Sex: Male

DRUGS (4)
  1. ZYPREXA [Suspect]
     Indication: SCHIZOPHRENIA
     Dosage: 50 MG DAY
     Dates: end: 20040728
  2. GEODON [Concomitant]
  3. DEPAKOTE [Concomitant]
  4. ATENOLOL [Concomitant]

REACTIONS (2)
  - ABDOMINAL PAIN UPPER [None]
  - PRESCRIBED OVERDOSE [None]
